FAERS Safety Report 15211653 (Version 1)
Quarter: 2018Q3

REPORT INFORMATION
  Report Type: Spontaneous
  Country: FR (occurrence: FR)
  Receive Date: 20180729
  Receipt Date: 20180729
  Transmission Date: 20181010
  Serious: Yes (Hospitalization)
  Sender: FDA-Public Use
  Company Number: PHHY2018FR057072

PATIENT
  Age: 75 Year
  Sex: Male

DRUGS (6)
  1. ZOPHREN [Suspect]
     Active Substance: ONDANSETRON
     Indication: VOMITING
     Dosage: UNK,
     Route: 042
  2. IFOSFAMIDE EG [Suspect]
     Active Substance: IFOSFAMIDE
     Indication: LYMPHOMA
     Dosage: 6600 MG, CYCLIC
     Route: 042
     Dates: start: 20170719, end: 20170919
  3. CARBOPLATIN HOSPIRA [Suspect]
     Active Substance: CARBOPLATIN
     Indication: LYMPHOMA
     Dosage: 365 MG ET 380 MG PAR CYCLE
     Route: 042
     Dates: start: 20170718, end: 20170919
  4. UROMITEXAN [Suspect]
     Active Substance: MESNA
     Indication: LYMPHOMA
     Dosage: UNK, NON RENSEIGN?E
     Route: 042
  5. RITUXIMAB. [Suspect]
     Active Substance: RITUXIMAB
     Indication: LYMPHOMA
     Dosage: 690 MG ET 660 MG PAR CYCLE
     Route: 042
     Dates: start: 20170717, end: 20170918
  6. ETOPOSIDE MYLAN [Suspect]
     Active Substance: ETOPOSIDE
     Indication: LYMPHOMA
     Dosage: 131 MG, CYCLIC
     Route: 042
     Dates: start: 20170717, end: 20170920

REACTIONS (1)
  - Encephalopathy [Recovered/Resolved]

NARRATIVE: CASE EVENT DATE: 20170719
